FAERS Safety Report 9869338 (Version 1)
Quarter: 2014Q1

REPORT INFORMATION
  Report Type: Spontaneous
  Country: US (occurrence: US)
  Receive Date: 20140205
  Receipt Date: 20140205
  Transmission Date: 20141002
  Serious: Yes (Hospitalization)
  Sender: FDA-Public Use
  Company Number: US-ACCORD-021654

PATIENT
  Age: 24 Year
  Sex: Female

DRUGS (3)
  1. MYCOPHENOLIC ACID [Suspect]
     Indication: IMMUNOSUPPRESSION
  2. TACROLIMUS [Suspect]
     Indication: IMMUNOSUPPRESSION
  3. PREDNISONE [Suspect]
     Indication: IMMUNOSUPPRESSION

REACTIONS (7)
  - Exposure during pregnancy [Unknown]
  - Renal failure [Recovered/Resolved]
  - Hypokalaemia [Recovered/Resolved]
  - Pneumonia respiratory syncytial viral [Recovered/Resolved]
  - Coombs positive haemolytic anaemia [Recovered/Resolved]
  - Sepsis [Recovered/Resolved]
  - Histoplasmosis [Recovered/Resolved]
